FAERS Safety Report 23667588 (Version 1)
Quarter: 2024Q1

REPORT INFORMATION
  Report Type: Spontaneous
  Country: US (occurrence: US)
  Receive Date: 20240325
  Receipt Date: 20240325
  Transmission Date: 20240409
  Serious: No
  Sender: FDA-Public Use
  Company Number: US-TEVA-VS-3157426

PATIENT
  Sex: Female

DRUGS (1)
  1. FLUTICASONE [Suspect]
     Active Substance: FLUTICASONE
     Indication: Product used for unknown indication
     Route: 065

REACTIONS (6)
  - Palpitations [Unknown]
  - Asthma [Unknown]
  - Insomnia [Unknown]
  - Asthenia [Unknown]
  - Office visit [Unknown]
  - Nasal discomfort [Unknown]
